FAERS Safety Report 21147785 (Version 1)
Quarter: 2022Q3

REPORT INFORMATION
  Report Type: Spontaneous
  Country: FR (occurrence: FR)
  Receive Date: 20220729
  Receipt Date: 20220729
  Transmission Date: 20221027
  Serious: Yes (Death)
  Sender: FDA-Public Use
  Company Number: None

PATIENT
  Age: 87 Year
  Sex: Male
  Weight: 80 kg

DRUGS (1)
  1. MEROPENEM [Suspect]
     Active Substance: MEROPENEM
     Indication: Empyema
     Dosage: 2 G [8 HOURS]
     Route: 042
     Dates: start: 20191209, end: 20200109

REACTIONS (2)
  - Death [Fatal]
  - Rash maculo-papular [Unknown]

NARRATIVE: CASE EVENT DATE: 20191218
